FAERS Safety Report 5411562-X (Version None)
Quarter: 2007Q3

REPORT INFORMATION
  Report Type: 
  Country: None (occurrence: None)
  Receive Date: 20070810
  Receipt Date: 20070801
  Transmission Date: 20080115
  Serious: Yes (Death, Hospitalization)
  Sender: FDA-Public Use
  Company Number: ES-AMGEN-US227095

PATIENT
  Sex: Male

DRUGS (3)
  1. ENBREL [Suspect]
     Indication: PSORIASIS
     Route: 058
     Dates: start: 20051001, end: 20070509
  2. ADALAT [Concomitant]
     Indication: HYPERTENSION
     Dosage: UNKNOWN
  3. METHOTREXATE [Concomitant]
     Route: 048
     Dates: end: 20070509

REACTIONS (1)
  - LUNG ADENOCARCINOMA METASTATIC [None]
